FAERS Safety Report 13534559 (Version 7)
Quarter: 2017Q3

REPORT INFORMATION
  Report Type: Report from Study
  Country: CA (occurrence: CA)
  Receive Date: 20170511
  Receipt Date: 20170915
  Transmission Date: 20171127
  Serious: Yes (Other)
  Sender: FDA-Public Use
  Company Number: CA-ROCHE-1917584

PATIENT
  Age: 68 Year
  Sex: Male
  Weight: 79.5 kg

DRUGS (22)
  1. ESBRIET [Suspect]
     Active Substance: PIRFENIDONE
     Indication: IDIOPATHIC PULMONARY FIBROSIS
     Route: 048
     Dates: start: 20170326
  2. ESBRIET [Interacting]
     Active Substance: PIRFENIDONE
     Route: 048
     Dates: start: 2017
  3. ESBRIET [Interacting]
     Active Substance: PIRFENIDONE
     Route: 048
     Dates: start: 2017, end: 20170516
  4. ESBRIET [Interacting]
     Active Substance: PIRFENIDONE
     Route: 048
     Dates: start: 20170523
  5. ESBRIET [Interacting]
     Active Substance: PIRFENIDONE
     Dosage: 534 MG - 267 MG - 534 MG
     Route: 048
     Dates: start: 201706
  6. ADALAT CC [Concomitant]
     Active Substance: NIFEDIPINE
  7. AIROMIR [Concomitant]
     Active Substance: ALBUTEROL SULFATE
  8. LORAZEPAM. [Concomitant]
     Active Substance: LORAZEPAM
  9. ECHINACEA [Concomitant]
     Active Substance: ECHINACEA, UNSPECIFIED
  10. VITAMIN C [Concomitant]
     Active Substance: ASCORBIC ACID
  11. SERRAPEPTASE [Concomitant]
     Active Substance: SERRAPEPTASE
  12. ADALAT [Concomitant]
     Active Substance: NIFEDIPINE
  13. OMEGA 3 [Concomitant]
     Active Substance: OMEGA-3 FATTY ACIDS
  14. ESBRIET [Interacting]
     Active Substance: PIRFENIDONE
     Route: 048
     Dates: start: 2017
  15. ESBRIET [Interacting]
     Active Substance: PIRFENIDONE
     Route: 048
     Dates: start: 2017
  16. ESBRIET [Interacting]
     Active Substance: PIRFENIDONE
     Dosage: 3-2-3 (2136 MG/ DAY)
     Route: 048
     Dates: start: 2017
  17. ZANTAC [Suspect]
     Active Substance: RANITIDINE HYDROCHLORIDE
     Indication: PRODUCT USED FOR UNKNOWN INDICATION
     Route: 065
  18. HYDROXYCHLOROQUINE [Concomitant]
     Active Substance: HYDROXYCHLOROQUINE
     Indication: POLYMYALGIA RHEUMATICA
  19. ALVESCO [Concomitant]
     Active Substance: CICLESONIDE
     Dosage: INHALER
     Route: 065
  20. DEXAMETHASONE. [Concomitant]
     Active Substance: DEXAMETHASONE
     Indication: POLYMYALGIA RHEUMATICA
  21. RABEPRAZOLE [Concomitant]
     Active Substance: RABEPRAZOLE
  22. NITRO (CANADA) [Suspect]
     Active Substance: NITROGLYCERIN
     Indication: PRODUCT USED FOR UNKNOWN INDICATION
     Route: 065

REACTIONS (12)
  - Angina pectoris [Not Recovered/Not Resolved]
  - Hypoaesthesia [Recovering/Resolving]
  - Malaise [Unknown]
  - Gastrooesophageal reflux disease [Unknown]
  - Chest discomfort [Not Recovered/Not Resolved]
  - Drug interaction [Unknown]
  - Nausea [Unknown]
  - Drug hypersensitivity [Unknown]
  - Dyspepsia [Recovering/Resolving]
  - Paraesthesia [Recovering/Resolving]
  - Headache [Not Recovered/Not Resolved]
  - Urinary tract infection [Recovered/Resolved]

NARRATIVE: CASE EVENT DATE: 2017
